FAERS Safety Report 7549903-X (Version None)
Quarter: 2011Q2

REPORT INFORMATION
  Report Type: 
  Country: None (occurrence: None)
  Receive Date: 20110615
  Receipt Date: 20110609
  Transmission Date: 20111010
  Serious: Yes (Other)
  Sender: FDA-Public Use
  Company Number: US-PFIZER INC-2011127223

PATIENT
  Sex: Female

DRUGS (3)
  1. ZITHROMAX [Suspect]
     Dosage: UNK
  2. LANTUS [Suspect]
     Dosage: 35 UNITS, TWICE DAILY
     Route: 058
  3. LANTUS [Suspect]
     Dosage: 100 IU/ML
     Route: 051

REACTIONS (2)
  - HYPERGLYCAEMIA [None]
  - INFECTION [None]
